FAERS Safety Report 4910119-4 (Version None)
Quarter: 2006Q1

REPORT INFORMATION
  Report Type: 
  Country: None (occurrence: None)
  Receive Date: 20060209
  Receipt Date: 20060203
  Transmission Date: 20060701
  Serious: Yes (Hospitalization, Other)
  Sender: FDA-Public Use
  Company Number: 2006017412

PATIENT
  Age: 53 Year
  Sex: Female

DRUGS (5)
  1. LIPITOR [Suspect]
     Indication: BLOOD CHOLESTEROL INCREASED
     Dosage: 40 MG (40 MG, 1 IN 1 D),
     Dates: start: 20010401
  2. DOCUSATE SODIUM (DOCUSATE SODIUM) [Concomitant]
  3. TAMOXIFEN CITRATE [Concomitant]
  4. LEXAPRO [Concomitant]
  5. DITROPAN XL [Concomitant]

REACTIONS (7)
  - CARPAL TUNNEL SYNDROME [None]
  - CATARACT [None]
  - FIBROMYALGIA [None]
  - INFECTION [None]
  - MUSCLE SPASMS [None]
  - RHEUMATOID ARTHRITIS [None]
  - THYROID DISORDER [None]
